FAERS Safety Report 5419344-X (Version None)
Quarter: 2007Q3

REPORT INFORMATION
  Report Type: 
  Country: None (occurrence: None)
  Receive Date: 20070815
  Receipt Date: 20070815
  Transmission Date: 20080115
  Serious: Yes (Other)
  Sender: FDA-Public Use
  Company Number: None

PATIENT
  Sex: Male

DRUGS (1)
  1. HALDOL [Suspect]
     Dosage: 1 MG PRN IV
     Route: 042
     Dates: start: 20070811, end: 20070813

REACTIONS (4)
  - AGITATION [None]
  - DRUG HYPERSENSITIVITY [None]
  - RASH ERYTHEMATOUS [None]
  - URTICARIA [None]
